FAERS Safety Report 4985600-2 (Version None)
Quarter: 2006Q2

REPORT INFORMATION
  Report Type: 
  Country: None (occurrence: None)
  Receive Date: 20060426
  Receipt Date: 20060426
  Transmission Date: 20061013
  Serious: Yes (Hospitalization)
  Sender: FDA-Public Use
  Company Number: None

PATIENT
  Sex: Male
  Weight: 80.14 kg

DRUGS (3)
  1. XELODA [Suspect]
     Indication: RECTAL CANCER
     Dosage: 36225 MG
     Dates: start: 20060409, end: 20060424
  2. ELOXATIN [Suspect]
     Dosage: 304 MG
     Dates: start: 20060410, end: 20060424
  3. ELOXATIN [Suspect]
     Dosage: 304 MG
     Dates: start: 20060409

REACTIONS (3)
  - CHILLS [None]
  - PYREXIA [None]
  - VOMITING [None]
